FAERS Safety Report 20802340 (Version 1)
Quarter: 2022Q2

REPORT INFORMATION
  Report Type: Spontaneous
  Country: US (occurrence: None)
  Receive Date: 20220507
  Receipt Date: 20220507
  Transmission Date: 20220721
  Serious: Yes (Other)
  Sender: FDA-Public Use
  Company Number: None

PATIENT
  Age: 58 Year
  Sex: Female
  Weight: 116.1 kg

DRUGS (24)
  1. CUVITRU [Suspect]
     Active Substance: HUMAN IMMUNOGLOBULIN G
     Indication: Immunodeficiency common variable
     Dosage: FREQUENCY : EVERY OTHER WEEK;?DOSE: 3 INJECTIONS
     Route: 058
     Dates: start: 20220210, end: 20220505
  2. diabetes pump [Concomitant]
  3. HUMALOG [Concomitant]
     Active Substance: INSULIN LISPRO
  4. ZOLOFT [Concomitant]
     Active Substance: SERTRALINE HYDROCHLORIDE
  5. SPIRIVA [Concomitant]
     Active Substance: TIOTROPIUM BROMIDE MONOHYDRATE
  6. HERBALS\TURMERIC [Concomitant]
     Active Substance: HERBALS\TURMERIC
  7. atorastatin [Concomitant]
  8. hyoscamine [Concomitant]
  9. LAMOTRIGINE [Concomitant]
     Active Substance: LAMOTRIGINE
  10. LEVOTHYROXINE [Concomitant]
     Active Substance: LEVOTHYROXINE
  11. LOSARTAN [Concomitant]
     Active Substance: LOSARTAN
  12. ZOFRAN [Concomitant]
     Active Substance: ONDANSETRON HYDROCHLORIDE
  13. QUETIAPINE [Concomitant]
     Active Substance: QUETIAPINE
  14. CLONAZEPAM [Concomitant]
     Active Substance: CLONAZEPAM
  15. VITAMIN D NOS [Concomitant]
     Active Substance: VITAMIN D NOS
  16. CRANBERRY [Concomitant]
     Active Substance: CRANBERRY
  17. OMEGA 3 [Concomitant]
     Active Substance: CAPSAICIN
  18. VITAMINS [Concomitant]
     Active Substance: VITAMINS
  19. TEA [Concomitant]
     Active Substance: TEA LEAF
  20. CINNAMON [Concomitant]
     Active Substance: CINNAMON
  21. HERBALS\TURMERIC [Concomitant]
     Active Substance: HERBALS\TURMERIC
  22. CHOLECALCIFEROL [Concomitant]
     Active Substance: CHOLECALCIFEROL
  23. ASPIRIN [Concomitant]
     Active Substance: ASPIRIN
  24. PROBIOTICS NOS [Concomitant]
     Active Substance: PROBIOTICS NOS

REACTIONS (4)
  - Diarrhoea [None]
  - Unevaluable event [None]
  - Nausea [None]
  - Product quality issue [None]

NARRATIVE: CASE EVENT DATE: 20220505
